FAERS Safety Report 5356690-2 (Version None)
Quarter: 2007Q2

REPORT INFORMATION
  Report Type: 
  Country: None (occurrence: None)
  Receive Date: 20070530
  Receipt Date: 20061218
  Transmission Date: 20071010
  Serious: Yes (Other)
  Sender: FDA-Public Use
  Company Number: US200608003813

PATIENT
  Age: 16 Year
  Sex: Male
  Weight: 36.3 kg

DRUGS (6)
  1. ZYPREXA [Suspect]
     Indication: ATTENTION DEFICIT/HYPERACTIVITY DISORDER
     Dosage: SEE IMAGE
     Dates: start: 20020621, end: 20020719
  2. ZYPREXA [Suspect]
     Indication: ATTENTION DEFICIT/HYPERACTIVITY DISORDER
     Dosage: SEE IMAGE
     Dates: start: 20020621, end: 20030102
  3. ZYPREXA [Suspect]
     Indication: ATTENTION DEFICIT/HYPERACTIVITY DISORDER
     Dosage: SEE IMAGE
     Dates: start: 20020720, end: 20030102
  4. ZYPREXA [Suspect]
     Indication: ATTENTION DEFICIT/HYPERACTIVITY DISORDER
     Dosage: SEE IMAGE
     Dates: start: 20030103, end: 20030528
  5. ZYPREXA [Suspect]
     Indication: ATTENTION DEFICIT/HYPERACTIVITY DISORDER
     Dosage: SEE IMAGE
     Dates: start: 20030103, end: 20040128
  6. ZYPREXA [Suspect]
     Indication: ATTENTION DEFICIT/HYPERACTIVITY DISORDER
     Dosage: SEE IMAGE
     Dates: start: 20030529, end: 20040128

REACTIONS (8)
  - DIABETES MELLITUS [None]
  - DIABETIC COMA [None]
  - DIABETIC KETOACIDOSIS [None]
  - HYPERGLYCAEMIA [None]
  - HYPOGLYCAEMIA [None]
  - PANCREATITIS [None]
  - PRESCRIBED OVERDOSE [None]
  - WEIGHT INCREASED [None]
